FAERS Safety Report 17021707 (Version 1)
Quarter: 2019Q4

REPORT INFORMATION
  Report Type: Spontaneous
  Country: NL (occurrence: NL)
  Receive Date: 20191112
  Receipt Date: 20191112
  Transmission Date: 20200122
  Serious: Yes (Other)
  Sender: FDA-Public Use
  Company Number: NVSC2019NL032198

PATIENT
  Age: 18 Year
  Sex: Male

DRUGS (5)
  1. METHOTREXATE. [Interacting]
     Active Substance: METHOTREXATE
     Dosage: 6 G/M2, Q6H (ON DAYS 21 AND 28)
     Route: 042
  2. METHOTREXATE. [Interacting]
     Active Substance: METHOTREXATE
     Dosage: 9 G/M2, Q6H (ON DAYS 21 AND 28)
     Route: 042
  3. CISPLATIN. [Interacting]
     Active Substance: CISPLATIN
     Indication: OSTEOSARCOMA METASTATIC
     Dosage: DAY 1-3, IN A 5-WEEKLY REGIMEN
     Route: 065
  4. METHOTREXATE. [Suspect]
     Active Substance: METHOTREXATE
     Indication: OSTEOSARCOMA METASTATIC
     Dosage: 12 G/M2, Q6H (ON DAYS 21 AND 28)
     Route: 042
  5. DOXORUBICIN [Interacting]
     Active Substance: DOXORUBICIN
     Indication: OSTEOSARCOMA METASTATIC
     Dosage: DAY 1-3, IN A 5-WEEKLY REGIMEN
     Route: 065

REACTIONS (6)
  - Toxicity to various agents [Unknown]
  - Renal impairment [Recovered/Resolved]
  - Drug interaction [Unknown]
  - Product use in unapproved indication [Unknown]
  - Hepatotoxicity [Recovering/Resolving]
  - Mucosal inflammation [Unknown]
